FAERS Safety Report 25426116 (Version 1)
Quarter: 2025Q2

REPORT INFORMATION
  Report Type: Spontaneous
  Country: CA (occurrence: CA)
  Receive Date: 20250612
  Receipt Date: 20250612
  Transmission Date: 20250716
  Serious: Yes (Other)
  Sender: Haleon PLC
  Company Number: CA-HALEON-2246436

PATIENT
  Age: 14 Year
  Sex: Male

DRUGS (1)
  1. IBUPROFEN [Suspect]
     Active Substance: IBUPROFEN
     Indication: Upper respiratory tract infection
     Route: 048

REACTIONS (2)
  - Conjunctivitis [Unknown]
  - Angioedema [Unknown]
